FAERS Safety Report 8471426-4 (Version None)
Quarter: 2012Q2

REPORT INFORMATION
  Report Type: 
  Country: None (occurrence: None)
  Receive Date: 20120627
  Receipt Date: 20120620
  Transmission Date: 20120825
  Serious: Yes (Hospitalization)
  Sender: FDA-Public Use
  Company Number: PHHY2011FR57563

PATIENT
  Sex: Male
  Weight: 68 kg

DRUGS (5)
  1. IMODIUM [Concomitant]
     Indication: DIARRHOEA
     Route: 048
     Dates: start: 20110616
  2. ALFUZOSIN HCL [Concomitant]
     Indication: BENIGN PROSTATIC HYPERPLASIA
     Dosage: 1 DF, ONE TABLET DAILY
     Route: 048
  3. GAVISCON [Concomitant]
     Indication: COUGH
     Route: 048
  4. ESOMEPRAZOLE [Concomitant]
     Indication: COUGH
     Dosage: 20 MG DAILY
     Route: 048
  5. EVEROLIMUS [Suspect]
     Indication: RENAL CELL CARCINOMA
     Dosage: 10 MG, DAILY
     Route: 048
     Dates: start: 20110520, end: 20110619

REACTIONS (7)
  - DIARRHOEA [None]
  - EPISTAXIS [None]
  - STOOL ANALYSIS ABNORMAL [None]
  - PYREXIA [None]
  - DERMATITIS ACNEIFORM [None]
  - ILEITIS [None]
  - FATIGUE [None]
